FAERS Safety Report 10087837 (Version 1)
Quarter: 2014Q2

REPORT INFORMATION
  Report Type: Spontaneous
  Country: US (occurrence: US)
  Receive Date: 20140418
  Receipt Date: 20140418
  Transmission Date: 20141212
  Serious: Yes (Other)
  Sender: FDA-Public Use
  Company Number: US-NAPPMUNDI-USA-2014-0111384

PATIENT
  Age: 14 Year
  Sex: Male

DRUGS (3)
  1. OXYCODONE HYDROCHLORIDE (SIMILAR TO NDA 22-272) [Suspect]
     Indication: DRUG ABUSE
     Dosage: UNKNOWN
  2. LYSERGIC ACID DIETHYLAMIDE [ACID] [Suspect]
     Indication: DRUG ABUSE
     Dosage: UNKNOWN
  3. OXYCONTIN (NDA 22-272) [Suspect]
     Indication: DRUG ABUSE
     Dosage: UNKNOWN

REACTIONS (3)
  - Drug dependence [Unknown]
  - Substance abuse [Unknown]
  - Euphoric mood [Unknown]
